FAERS Safety Report 11205434 (Version 3)
Quarter: 2015Q3

REPORT INFORMATION
  Report Type: Spontaneous
  Country: US (occurrence: US)
  Receive Date: 20150622
  Receipt Date: 20150901
  Transmission Date: 20151125
  Serious: No
  Sender: FDA-Public Use
  Company Number: US-BIOGENIDEC-2015BI083398

PATIENT
  Age: 57 Year
  Sex: Female

DRUGS (19)
  1. SERTRALINE HYDROCHLORIDE. [Concomitant]
     Active Substance: SERTRALINE HYDROCHLORIDE
     Indication: DEPRESSION
  2. TRAZODONE [Concomitant]
     Active Substance: TRAZODONE HYDROCHLORIDE
  3. PARACETAMOL [Concomitant]
     Active Substance: ACETAMINOPHEN
  4. ALEVE [Concomitant]
     Active Substance: NAPROXEN SODIUM
  5. TECFIDERA [Suspect]
     Active Substance: DIMETHYL FUMARATE
     Indication: PRODUCT USED FOR UNKNOWN INDICATION
     Route: 048
  6. ALPRAZOLAM. [Concomitant]
     Active Substance: ALPRAZOLAM
  7. TEMAZEPAM. [Concomitant]
     Active Substance: TEMAZEPAM
  8. MICROLET [Concomitant]
  9. CLONAZEPAM. [Concomitant]
     Active Substance: CLONAZEPAM
  10. GABAPENTIN. [Concomitant]
     Active Substance: GABAPENTIN
  11. METANEX [Concomitant]
  12. OXYCODONE HYDROCHLORIDE. [Concomitant]
     Active Substance: OXYCODONE HYDROCHLORIDE
  13. AMPYRA [Concomitant]
     Active Substance: DALFAMPRIDINE
     Indication: GAIT DISTURBANCE
     Route: 048
     Dates: start: 2012
  14. MICROLET (ETHINYLESTRADIOL, GESTODENE) [Concomitant]
  15. MIRALAX [Concomitant]
     Active Substance: POLYETHYLENE GLYCOL 3350
  16. CLONAZEPAM. [Concomitant]
     Active Substance: CLONAZEPAM
  17. MELATONIN [Concomitant]
     Active Substance: MELATONIN
  18. GILENYA [Concomitant]
     Active Substance: FINGOLIMOD HYDROCHLORIDE
     Indication: MULTIPLE SCLEROSIS
     Dates: end: 201407
  19. BENEFIBER [Concomitant]
     Active Substance: STARCH, WHEAT

REACTIONS (32)
  - Pain [Unknown]
  - Somnolence [Unknown]
  - Middle insomnia [Not Recovered/Not Resolved]
  - Decreased appetite [Unknown]
  - Fatigue [Unknown]
  - Malaise [Unknown]
  - Confusional state [Unknown]
  - Depression [Not Recovered/Not Resolved]
  - Nausea [Recovered/Resolved]
  - Impaired driving ability [Unknown]
  - Arthralgia [Not Recovered/Not Resolved]
  - Fall [Unknown]
  - Expired product administered [Unknown]
  - Balance disorder [Unknown]
  - Crying [Not Recovered/Not Resolved]
  - Multiple sclerosis [Unknown]
  - Abasia [Unknown]
  - Inappropriate schedule of drug administration [Unknown]
  - Muscular weakness [Unknown]
  - Stress [Unknown]
  - Paraesthesia [Unknown]
  - Panic attack [Not Recovered/Not Resolved]
  - Abdominal pain [Not Recovered/Not Resolved]
  - Dyspepsia [Not Recovered/Not Resolved]
  - Feeling abnormal [Unknown]
  - Pain in extremity [Not Recovered/Not Resolved]
  - Contusion [Unknown]
  - Weight decreased [Unknown]
  - Dyspnoea [Unknown]
  - Anxiety [Not Recovered/Not Resolved]
  - Hepatic enzyme increased [Unknown]
  - Haemorrhagic diathesis [Unknown]
